FAERS Safety Report 10248802 (Version 1)
Quarter: 2014Q2

REPORT INFORMATION
  Report Type: Spontaneous
  Country: DE (occurrence: None)
  Receive Date: 20140618
  Receipt Date: 20140618
  Transmission Date: 20141212
  Serious: Yes (Hospitalization)
  Sender: FDA-Public Use
  Company Number: D0084213A

PATIENT
  Age: 64 Year
  Sex: Female

DRUGS (10)
  1. PAROXETINE HYDROCHLORIDE (FORMULATION UNKNOWN) (PAROXETINE HYDROCHLORIDE) [Suspect]
     Route: 048
  2. AMISULPRIDE [Suspect]
     Dosage: VARIABLE DOSE/ORAL
     Route: 048
     Dates: start: 20140211
  3. DOXEPIN [Suspect]
  4. QUETIAPINE [Suspect]
  5. POTASSIUM CHLORIDE [Concomitant]
  6. FRUSEMIDE [Concomitant]
  7. ATACAND PLUS [Concomitant]
  8. SIMVASTATIN [Concomitant]
  9. PROPRANOLOL HYDROCHLORIDE [Concomitant]
  10. PANTOPRAZOLE [Concomitant]

REACTIONS (1)
  - Akathisia [None]
